FAERS Safety Report 7247033-8 (Version None)
Quarter: 2011Q1

REPORT INFORMATION
  Report Type: 
  Country: None (occurrence: None)
  Receive Date: 20110127
  Receipt Date: 20110126
  Transmission Date: 20110831
  Serious: Yes (Hospitalization, Other)
  Sender: FDA-Public Use
  Company Number: HK-ABBOTT-10P-075-0684547-00

PATIENT
  Age: 54 Year
  Sex: Male

DRUGS (1)
  1. HUMIRA [Suspect]
     Indication: PSORIASIS
     Route: 058

REACTIONS (3)
  - LYMPHADENOPATHY [None]
  - TUBERCULOSIS [None]
  - WEIGHT DECREASED [None]
